FAERS Safety Report 6468910-1 (Version None)
Quarter: 2009Q4

REPORT INFORMATION
  Report Type: 
  Country: None (occurrence: None)
  Receive Date: 20091203
  Receipt Date: 20070928
  Transmission Date: 20100525
  Serious: Yes (Death, Hospitalization)
  Sender: FDA-Public Use
  Company Number: US-ELI_LILLY_AND_COMPANY-US200609006041

PATIENT
  Sex: Male
  Weight: 59.863 kg

DRUGS (11)
  1. FORTEO [Suspect]
     Indication: OSTEOPOROSIS
     Dosage: 20 UG, DAILY (1/D)
     Dates: start: 20060907, end: 20060910
  2. ADVAIR DISKUS 100/50 [Concomitant]
     Dosage: 500 UG, UNK
  3. ASPIRIN [Concomitant]
     Dosage: 81 MG, DAILY (1/D)
  4. CALTRATE [Concomitant]
     Dosage: 600 UNK, UNK
  5. CENTRUM SILVER [Concomitant]
  6. COMBIVENT                               /GFR/ [Concomitant]
     Dosage: 103 UG, 2/D
  7. FOSAMAX /ITA/ [Concomitant]
     Dosage: 70 MG, WEEKLY (1/W)
  8. PREVACID [Concomitant]
     Dosage: 30 MG, DAILY (1/D)
  9. SPIRIVA [Concomitant]
  10. VITAMIN B KOMPLEX [Concomitant]
     Dosage: UNK, DAILY (1/D)
  11. XALATAN                                 /SWE/ [Concomitant]
     Dosage: 1 UNK, DAILY (1/D)

REACTIONS (3)
  - PLEURAL EFFUSION [None]
  - PNEUMONIA [None]
  - RESPIRATORY FAILURE [None]
